FAERS Safety Report 19406789 (Version 2)
Quarter: 2021Q3

REPORT INFORMATION
  Report Type: Report from Study
  Country: US (occurrence: US)
  Receive Date: 20210611
  Receipt Date: 20210824
  Transmission Date: 20211014
  Serious: No
  Sender: FDA-Public Use
  Company Number: US-SA-2021SA192847

PATIENT
  Age: 68 Year
  Sex: Male

DRUGS (31)
  1. LIDOCAINE. [Concomitant]
     Active Substance: LIDOCAINE
  2. LINZESS [Concomitant]
     Active Substance: LINACLOTIDE
     Dosage: 290 MG
     Route: 048
  3. ZYRTEC [Concomitant]
     Active Substance: CETIRIZINE HYDROCHLORIDE
     Dosage: 10 MG
     Route: 048
  4. GAMUNEX [Concomitant]
     Active Substance: HUMAN IMMUNOGLOBULIN G
  5. ROPINIROLE HCL [Concomitant]
     Active Substance: ROPINIROLE HYDROCHLORIDE
     Dosage: 0.5 MG
     Route: 048
  6. SAVELLA [Concomitant]
     Active Substance: MILNACIPRAN HYDROCHLORIDE
     Dosage: 100 MG
     Route: 048
  7. LYRICA [Concomitant]
     Active Substance: PREGABALIN
     Dosage: 200 MG
     Route: 048
  8. DUPILUMAB [Suspect]
     Active Substance: DUPILUMAB
     Indication: ILLNESS
     Dosage: 600 MG, 1X
     Route: 058
     Dates: start: 20200601, end: 20200601
  9. INDERAL [Concomitant]
     Active Substance: PROPRANOLOL HYDROCHLORIDE
     Dosage: 120MG
  10. ACETAMINOPHEN. [Concomitant]
     Active Substance: ACETAMINOPHEN
  11. KETOROLAC TROMETHAMINE. [Concomitant]
     Active Substance: KETOROLAC TROMETHAMINE
  12. CYANOCOBALAMIN. [Concomitant]
     Active Substance: CYANOCOBALAMIN
  13. DIFLUCAN [Concomitant]
     Active Substance: FLUCONAZOLE
  14. EPINEPHRINE. [Concomitant]
     Active Substance: EPINEPHRINE
  15. FERROUS SULFATE. [Concomitant]
     Active Substance: FERROUS SULFATE
     Route: 048
  16. MIRALAX [Concomitant]
     Active Substance: POLYETHYLENE GLYCOL 3350
  17. DUPILUMAB [Suspect]
     Active Substance: DUPILUMAB
     Indication: DERMATITIS ATOPIC
     Dosage: 300 MG, QOW
     Route: 058
     Dates: end: 202104
  18. HEPARIN [Concomitant]
     Active Substance: HEPARIN SODIUM
  19. MAGNESIUM OXIDE. [Concomitant]
     Active Substance: MAGNESIUM OXIDE
     Dosage: 400 MG
     Route: 048
  20. PROTONIX [OMEPRAZOLE] [Concomitant]
     Active Substance: OMEPRAZOLE
     Dosage: 40 MG
     Route: 048
  21. NORMAL SALINE [Concomitant]
     Active Substance: SODIUM CHLORIDE
  22. CODEINE KENT [Concomitant]
     Dosage: 120MG
  23. ZONISAMIDE. [Concomitant]
     Active Substance: ZONISAMIDE
     Dosage: 50 MG
     Route: 048
  24. OXYBUTYNIN CHLORIDE. [Concomitant]
     Active Substance: OXYBUTYNIN CHLORIDE
     Dosage: 5 MG
     Route: 048
  25. PEPCID [Concomitant]
     Active Substance: FAMOTIDINE
     Dosage: 20 MG
     Route: 048
  26. FISH OIL [Concomitant]
     Active Substance: FISH OIL
     Route: 048
  27. DIPHENHYDRAMINE. [Concomitant]
     Active Substance: DIPHENHYDRAMINE
  28. LORATADINE. [Concomitant]
     Active Substance: LORATADINE
     Dosage: 10 MG
  29. TESSALON [Concomitant]
     Active Substance: BENZONATATE
     Dosage: 200 MG
     Route: 048
  30. REGLAN [Concomitant]
     Active Substance: METOCLOPRAMIDE HYDROCHLORIDE
     Dosage: 10 MG
     Route: 048
  31. VITAMIN D3 [Concomitant]
     Active Substance: CHOLECALCIFEROL
     Route: 048

REACTIONS (7)
  - Product use in unapproved indication [Unknown]
  - Pruritus [Not Recovered/Not Resolved]
  - Skin haemorrhage [Not Recovered/Not Resolved]
  - Insomnia [Not Recovered/Not Resolved]
  - Rash papular [Not Recovered/Not Resolved]
  - Scratch [Not Recovered/Not Resolved]
  - Neurostimulator removal [Unknown]

NARRATIVE: CASE EVENT DATE: 20210526
